FAERS Safety Report 23714242 (Version 1)
Quarter: 2024Q2

REPORT INFORMATION
  Report Type: Spontaneous
  Country: FR (occurrence: FR)
  Receive Date: 20240405
  Receipt Date: 20240405
  Transmission Date: 20240716
  Serious: No
  Sender: FDA-Public Use
  Company Number: FR-BoehringerIngelheim-2024-BI-018484

PATIENT
  Age: 44 Year
  Sex: Female

DRUGS (1)
  1. TAMSULOSIN HYDROCHLORIDE [Suspect]
     Active Substance: TAMSULOSIN HYDROCHLORIDE
     Indication: Urinary tract disorder
     Dosage: 2 DF, QD
     Route: 065

REACTIONS (1)
  - Off label use [Unknown]
